FAERS Safety Report 6076359-9 (Version None)
Quarter: 2009Q1

REPORT INFORMATION
  Report Type: 
  Country: None (occurrence: None)
  Receive Date: 20090213
  Receipt Date: 20090205
  Transmission Date: 20090719
  Serious: Yes (Hospitalization)
  Sender: FDA-Public Use
  Company Number: GB-RANBAXY-2009RR-21690

PATIENT
  Age: 70 Year
  Sex: Male

DRUGS (9)
  1. ASPIRIN [Suspect]
     Indication: BARRETT'S OESOPHAGUS
     Dosage: 300 MG, QD
     Route: 048
     Dates: start: 20060225, end: 20080106
  2. CODEINE SUL TAB [Suspect]
     Indication: PAIN
     Dosage: 15 MG, QID
     Route: 048
     Dates: end: 20080711
  3. NEXIUM [Suspect]
     Indication: BARRETT'S OESOPHAGUS
     Dosage: 20 MG, QD
     Route: 048
     Dates: start: 20080717, end: 20080902
  4. NEXIUM [Suspect]
     Dosage: 20 MG, BID
     Route: 048
     Dates: start: 20060225, end: 20080711
  5. NEXIUM [Suspect]
     Dosage: UNK
     Dates: end: 20081117
  6. AMLODIPINE [Concomitant]
     Indication: HYPERTENSION
     Dosage: 10 MG, QD
     Route: 048
  7. OLMESARTAN MEDOXOMIL [Concomitant]
     Indication: HYPERTENSION
     Dosage: 20 MG, QD
     Route: 048
  8. PERINDOPRIL ERBUMINE [Concomitant]
     Indication: HYPERTENSION
     Dosage: 8 MG, QD
     Route: 048
  9. SPIRONOLACTONE [Concomitant]
     Indication: HYPERTENSION
     Dosage: 50 MG, QD
     Route: 048

REACTIONS (1)
  - CHOLECYSTITIS ACUTE [None]
